FAERS Safety Report 12037518 (Version 2)
Quarter: 2016Q1

REPORT INFORMATION
  Report Type: Report from Study
  Country: BR (occurrence: BR)
  Receive Date: 20160208
  Receipt Date: 20160308
  Transmission Date: 20160526
  Serious: Yes (Hospitalization, Other)
  Sender: FDA-Public Use
  Company Number: PHHY2016BR015575

PATIENT
  Age: 56 Year
  Sex: Male
  Weight: 65 kg

DRUGS (10)
  1. DIOVAN HCT [Suspect]
     Active Substance: HYDROCHLOROTHIAZIDE\VALSARTAN
     Dosage: UNK
     Route: 065
     Dates: start: 20151002
  2. CALTREN [Concomitant]
     Active Substance: NITRENDIPINE
     Indication: BLOOD PRESSURE ABNORMAL
     Dosage: 10 MG, QD
     Route: 048
  3. MAREVAN [Concomitant]
     Active Substance: WARFARIN SODIUM
     Indication: ANTICOAGULANT THERAPY
     Dosage: 1 DF, (ON MONDAY, WEDNESDAY AND FRIDAY)
     Route: 048
     Dates: start: 201602
  4. STILNOX [Concomitant]
     Active Substance: ZOLPIDEM TARTRATE
     Indication: ANTICOAGULANT THERAPY
     Dosage: 1 DF, QD (10 MG)
     Route: 048
     Dates: start: 201602
  5. ATORVASTATIN [Concomitant]
     Active Substance: ATORVASTATIN
     Dosage: 1 DF, QD (40 MG)
     Route: 048
     Dates: start: 20151002
  6. DIOVAN HCT [Suspect]
     Active Substance: HYDROCHLOROTHIAZIDE\VALSARTAN
     Indication: HYPERTENSION
     Dosage: 1 DF, QD
     Route: 048
     Dates: start: 201310, end: 201509
  7. ATORVASTATIN [Concomitant]
     Active Substance: ATORVASTATIN
     Indication: BLOOD PRESSURE ABNORMAL
     Dosage: 10 MG, QD
     Route: 048
  8. ALLOPURINOL. [Concomitant]
     Active Substance: ALLOPURINOL
     Indication: BLOOD PRESSURE ABNORMAL
     Dosage: 100 MG, QD
     Route: 048
     Dates: start: 20150923
  9. PANTOPRAZOLE [Concomitant]
     Active Substance: PANTOPRAZOLE SODIUM
     Indication: GASTROINTESTINAL DISORDER
     Dosage: 1 DF, QD (40 MG)
     Route: 048
     Dates: start: 20160216
  10. MAREVAN [Concomitant]
     Active Substance: WARFARIN SODIUM
     Dosage: 0.5 DF, (TUESDAY, THURSDAY, SATURDAY AND SUNDAY)
     Route: 048

REACTIONS (13)
  - Procedural complication [Unknown]
  - Blood pressure increased [Unknown]
  - Renal artery thrombosis [Unknown]
  - Aphonia [Recovered/Resolved]
  - Factor II mutation [Unknown]
  - Kidney small [Unknown]
  - Cerebral ischaemia [Recovered/Resolved]
  - Thrombosis [Unknown]
  - Speech disorder [Recovered/Resolved]
  - Facial paralysis [Recovered/Resolved]
  - Dyspnoea [Recovered/Resolved]
  - Renal impairment [Unknown]
  - Procedural haemorrhage [Unknown]

NARRATIVE: CASE EVENT DATE: 201509
